FAERS Safety Report 21437080 (Version 1)
Quarter: 2022Q4

REPORT INFORMATION
  Report Type: Spontaneous
  Country: US (occurrence: US)
  Receive Date: 20221010
  Receipt Date: 20221010
  Transmission Date: 20230113
  Serious: No
  Sender: FDA-Public Use
  Company Number: US-SA-SAC20221003000282

PATIENT
  Age: 44 Year
  Sex: Male

DRUGS (1)
  1. DUPIXENT [Suspect]
     Active Substance: DUPILUMAB
     Dosage: 300 MG, OTHER
     Route: 058

REACTIONS (10)
  - Hypersensitivity [Unknown]
  - Dizziness [Unknown]
  - Feeling abnormal [Unknown]
  - Heart rate increased [Unknown]
  - Chest pain [Unknown]
  - Hypoaesthesia [Unknown]
  - Tremor [Unknown]
  - Throat tightness [Unknown]
  - Hyperhidrosis [Unknown]
  - Pruritus [Unknown]

NARRATIVE: CASE EVENT DATE: 20220702
